FAERS Safety Report 8086716-7 (Version None)
Quarter: 2012Q1

REPORT INFORMATION
  Report Type: 
  Country: None (occurrence: None)
  Receive Date: 20120128
  Receipt Date: 20110611
  Transmission Date: 20120608
  Serious: No
  Sender: FDA-Public Use
  Company Number: US-ABBOTT-11P-163-0731896-00

PATIENT
  Age: 59 Year
  Sex: Female

DRUGS (5)
  1. HUMIRA [Suspect]
     Indication: PSORIATIC ARTHROPATHY
     Dates: start: 20110428
  2. PRAVACHOL [Concomitant]
     Indication: BLOOD CHOLESTEROL INCREASED
  3. CALCIUM [Concomitant]
     Indication: SUPPLEMENTATION THERAPY
     Dosage: 600 TABLETS
  4. ASPIRIN [Concomitant]
     Indication: PROPHYLAXIS
  5. DETROL [Concomitant]
     Indication: URINARY TRACT DISORDER

REACTIONS (5)
  - LACRIMATION INCREASED [None]
  - OCULAR HYPERAEMIA [None]
  - EYE SWELLING [None]
  - EYELID OEDEMA [None]
  - EYE PRURITUS [None]
